FAERS Safety Report 18507041 (Version 1)
Quarter: 2020Q4

REPORT INFORMATION
  Report Type: Spontaneous
  Country: US (occurrence: US)
  Receive Date: 20201115
  Receipt Date: 20201115
  Transmission Date: 20210114
  Serious: Yes (Disabling, Other)
  Sender: FDA-Public Use
  Company Number: None

PATIENT
  Age: 38 Year
  Sex: Female
  Weight: 90 kg

DRUGS (9)
  1. VIIBRYD [Concomitant]
     Active Substance: VILAZODONE HYDROCHLORIDE
  2. ADULT MULTIVITAMIN GUMMY [Concomitant]
  3. LIDOCAINE PATCH [Concomitant]
     Active Substance: LIDOCAINE
  4. TROKENDI XR [Suspect]
     Active Substance: TOPIRAMATE
     Indication: MIGRAINE PROPHYLAXIS
     Dosage: ?          QUANTITY:1 CAPSULE(S);?
     Route: 048
  5. PHENTERMINE. [Concomitant]
     Active Substance: PHENTERMINE
  6. MEDICAL TENS [Concomitant]
  7. VITAMIN D3 SUPPLEMENT [Concomitant]
  8. NORCO [Concomitant]
     Active Substance: ACETAMINOPHEN\HYDROCODONE BITARTRATE
  9. IRON [Concomitant]
     Active Substance: IRON

REACTIONS (11)
  - Epistaxis [None]
  - Asthenia [None]
  - Body temperature decreased [None]
  - Urine odour abnormal [None]
  - Chills [None]
  - Diarrhoea [None]
  - Urine abnormality [None]
  - Dysuria [None]
  - Feeling cold [None]
  - Heart rate irregular [None]
  - Coordination abnormal [None]

NARRATIVE: CASE EVENT DATE: 20200407
